FAERS Safety Report 22247315 (Version 2)
Quarter: 2023Q2

REPORT INFORMATION
  Report Type: Report from Study
  Country: US (occurrence: US)
  Receive Date: 20230425
  Receipt Date: 20230428
  Transmission Date: 20230722
  Serious: Yes (Hospitalization, Other)
  Sender: FDA-Public Use
  Company Number: US-ABBVIE-4733923

PATIENT
  Sex: Male

DRUGS (1)
  1. SKYRIZI [Suspect]
     Active Substance: RISANKIZUMAB-RZAA
     Indication: Product used for unknown indication
     Dosage: DRUG START DATE-29 JUN 2022?DRUG START DATE-19 OCT 2022
     Route: 058

REACTIONS (2)
  - Renal failure [Unknown]
  - Cardiac failure [Unknown]

NARRATIVE: CASE EVENT DATE: 20220101
